FAERS Safety Report 19262358 (Version 1)
Quarter: 2021Q2

REPORT INFORMATION
  Report Type: Spontaneous
  Country: US (occurrence: US)
  Receive Date: 20210516
  Receipt Date: 20210516
  Transmission Date: 20210717
  Serious: No
  Sender: FDA-Public Use
  Company Number: US-AMGEN-USASP2021072260

PATIENT
  Sex: Female

DRUGS (2)
  1. OTEZLA [Suspect]
     Active Substance: APREMILAST
     Dosage: UNK
     Route: 065
     Dates: start: 202102
  2. OTEZLA [Suspect]
     Active Substance: APREMILAST
     Indication: PSORIASIS
     Dosage: UNK
     Route: 065

REACTIONS (7)
  - Diarrhoea [Unknown]
  - Drug ineffective [Unknown]
  - Depressed mood [Unknown]
  - Headache [Recovered/Resolved]
  - Feeling abnormal [Unknown]
  - Nausea [Unknown]
  - Abdominal pain upper [Unknown]

NARRATIVE: CASE EVENT DATE: 2021
